FAERS Safety Report 6424951-1 (Version None)
Quarter: 2009Q4

REPORT INFORMATION
  Report Type: 
  Country: None (occurrence: None)
  Receive Date: 20091103
  Receipt Date: 20091028
  Transmission Date: 20100525
  Serious: Yes (Hospitalization, Other)
  Sender: FDA-Public Use
  Company Number: AR-ELI_LILLY_AND_COMPANY-AR200910007356

PATIENT
  Age: 64 Year
  Sex: Female

DRUGS (10)
  1. BYETTA [Suspect]
     Dosage: 10 UG, UNKNOWN
     Route: 058
  2. BYETTA [Suspect]
     Dosage: 5 UG, UNKNOWN
     Route: 058
     Dates: start: 20091001
  3. OMEPRAZOLE [Concomitant]
     Dosage: 20 MG, UNKNOWN
     Route: 065
  4. ASPIRIN [Concomitant]
     Dosage: UNK, UNKNOWN
     Route: 065
  5. CLOPIDOGREL [Concomitant]
     Dosage: UNK, UNKNOWN
     Route: 065
  6. ROSUVASTATINE [Concomitant]
     Dosage: UNK, UNKNOWN
     Route: 065
  7. ENALAPRIL [Concomitant]
     Dosage: UNK, UNKNOWN
     Route: 065
  8. CARVEDILOL [Concomitant]
     Dosage: UNK, UNKNOWN
     Route: 065
  9. FUROSEMIDE [Concomitant]
     Dosage: UNK, UNKNOWN
     Route: 065
  10. METFORMIN HCL [Concomitant]
     Dosage: UNK, UNKNOWN
     Route: 065

REACTIONS (4)
  - NAUSEA [None]
  - PNEUMONIA [None]
  - RESPIRATORY ARREST [None]
  - VOMITING [None]
